FAERS Safety Report 22320423 (Version 2)
Quarter: 2023Q2

REPORT INFORMATION
  Report Type: Spontaneous
  Country: PL (occurrence: PL)
  Receive Date: 20230515
  Receipt Date: 20230526
  Transmission Date: 20230722
  Serious: Yes (Hospitalization)
  Sender: FDA-Public Use
  Company Number: PL-TEVA-2023-PL-2886602

PATIENT
  Age: 34 Year
  Sex: Male

DRUGS (7)
  1. OLANZAPINE [Suspect]
     Active Substance: OLANZAPINE
     Indication: Schizophrenia
     Dosage: LONG-ACTING INJECTABLE
     Route: 065
     Dates: start: 202101, end: 2021
  2. OLANZAPINE [Suspect]
     Active Substance: OLANZAPINE
     Dosage: LONG-ACTING INJECTABLE- FORTNIGHTLY
     Route: 065
     Dates: start: 202103
  3. VALPROIC ACID [Suspect]
     Active Substance: VALPROIC ACID
     Indication: Schizophrenia
     Route: 065
     Dates: start: 202101, end: 2021
  4. DIAZEPAM [Suspect]
     Active Substance: DIAZEPAM
     Indication: Schizophrenia
     Dosage: 15 MILLIGRAM DAILY;
     Route: 048
     Dates: start: 202103, end: 2021
  5. HALOPERIDOL [Suspect]
     Active Substance: HALOPERIDOL
     Indication: Schizophrenia
     Dosage: 15 MILLIGRAM DAILY;
     Route: 048
     Dates: start: 202103, end: 2021
  6. PERPHENAZINE ENANTHATE [Concomitant]
     Indication: Schizophrenia
     Route: 065
  7. QUETIAPINE [Concomitant]
     Active Substance: QUETIAPINE
     Indication: Schizophrenia
     Route: 065
     Dates: start: 201101

REACTIONS (4)
  - Rebound effect [Unknown]
  - Drug ineffective [Unknown]
  - Treatment noncompliance [Unknown]
  - Intentional product misuse [Unknown]

NARRATIVE: CASE EVENT DATE: 20210101
